FAERS Safety Report 10729946 (Version 1)
Quarter: 2015Q1

REPORT INFORMATION
  Report Type: Spontaneous
  Country: US (occurrence: None)
  Receive Date: 20150121
  Receipt Date: 20150121
  Transmission Date: 20150721
  Serious: No
  Sender: FDA-Public Use
  Company Number: None

PATIENT
  Age: 18 Year
  Sex: Male
  Weight: 95.26 kg

DRUGS (1)
  1. VYVANSE [Suspect]
     Active Substance: LISDEXAMFETAMINE DIMESYLATE
     Indication: ATTENTION DEFICIT/HYPERACTIVITY DISORDER
     Dosage: 1 PILL IN MORNING, ONCE DAILY, TAKEN BY MOUTH
     Route: 048
     Dates: start: 20150114, end: 20150121

REACTIONS (5)
  - Legal problem [None]
  - Irritability [None]
  - Aggression [None]
  - Suicide attempt [None]
  - Homicidal ideation [None]

NARRATIVE: CASE EVENT DATE: 20150115
